FAERS Safety Report 6834826-1 (Version None)
Quarter: 2010Q3

REPORT INFORMATION
  Report Type: 
  Country: None (occurrence: None)
  Receive Date: 20100712
  Receipt Date: 20070419
  Transmission Date: 20110219
  Serious: No
  Sender: FDA-Public Use
  Company Number: US-PFIZER INC-2007032605

PATIENT
  Age: 50 Year
  Sex: Female
  Weight: 66.363 kg

DRUGS (1)
  1. CHANTIX [Suspect]
     Indication: SMOKING CESSATION THERAPY
     Route: 048
     Dates: start: 20070405

REACTIONS (3)
  - ARTHRALGIA [None]
  - INSOMNIA [None]
  - PAIN IN EXTREMITY [None]
